FAERS Safety Report 21387013 (Version 3)
Quarter: 2023Q1

REPORT INFORMATION
  Report Type: Report from Study
  Country: US (occurrence: US)
  Receive Date: 20220928
  Receipt Date: 20230217
  Transmission Date: 20230417
  Serious: Yes (Hospitalization)
  Sender: FDA-Public Use
  Company Number: US-VERTEX PHARMACEUTICALS-2022-014260

PATIENT
  Age: 24 Year
  Sex: Male

DRUGS (19)
  1. TRIKAFTA [Suspect]
     Active Substance: ELEXACAFTOR\IVACAFTOR\TEZACAFTOR
     Indication: Cystic fibrosis
     Dosage: 2 ORANGE TABS,AM/1 BLUE TAB,PM
     Route: 048
     Dates: start: 201911
  2. TRIKAFTA [Suspect]
     Active Substance: ELEXACAFTOR\IVACAFTOR\TEZACAFTOR
     Dosage: 2 ORANGE TABS IN AM
     Route: 048
     Dates: start: 20220211, end: 2022
  3. TRIKAFTA [Suspect]
     Active Substance: ELEXACAFTOR\IVACAFTOR\TEZACAFTOR
     Dosage: REDUCED, 1 MORNING TAB ONLY, NO EVENING DOSE
     Route: 048
     Dates: start: 202209
  4. ACETYLCYSTEINE [Concomitant]
     Active Substance: ACETYLCYSTEINE
  5. ADVAIR HFA [Concomitant]
     Active Substance: FLUTICASONE PROPIONATE\SALMETEROL XINAFOATE
     Dosage: 230/21
  6. ALBUTEROL SULFATE [Concomitant]
     Active Substance: ALBUTEROL SULFATE
  7. ALBUTEROL [Concomitant]
     Active Substance: ALBUTEROL
  8. CATHFLO ACTIVASE [Concomitant]
     Active Substance: ALTEPLASE
  9. COLISTIMETHATE [Concomitant]
     Active Substance: COLISTIMETHATE SODIUM
  10. CREON [Concomitant]
     Active Substance: PANCRELIPASE AMYLASE\PANCRELIPASE LIPASE\PANCRELIPASE PROTEASE
     Dosage: 24000UNT
  11. PREDNISONE [Concomitant]
     Active Substance: PREDNISONE
  12. FLUTICASONE [Concomitant]
     Active Substance: FLUTICASONE
  13. CROMOLYN SODIUM [Concomitant]
     Active Substance: CROMOLYN SODIUM
     Dosage: 20MG/2ML
  14. DOCOSANOL [Concomitant]
     Active Substance: DOCOSANOL
  15. FAMOTIDINE [Concomitant]
     Active Substance: FAMOTIDINE
  16. PHYTONADIONE [Concomitant]
     Active Substance: PHYTONADIONE
  17. SMOOTH LAX (POLYETHYLENE GLYCOL 3350) [Concomitant]
     Active Substance: POLYETHYLENE GLYCOL 3350
  18. TOBI PODHALER [Concomitant]
     Active Substance: TOBRAMYCIN
     Dosage: 224=4PK
  19. TOBRAMYCIN [Concomitant]
     Active Substance: TOBRAMYCIN
     Dosage: 300/5ML

REACTIONS (7)
  - Vision blurred [Not Recovered/Not Resolved]
  - Head discomfort [Not Recovered/Not Resolved]
  - Cystic fibrosis [Not Recovered/Not Resolved]
  - Headache [Recovered/Resolved]
  - Dizziness [Not Recovered/Not Resolved]
  - Migraine [Unknown]
  - Sinus disorder [Unknown]

NARRATIVE: CASE EVENT DATE: 20220909
